FAERS Safety Report 4649188-8 (Version None)
Quarter: 2005Q2

REPORT INFORMATION
  Report Type: 
  Country: None (occurrence: None)
  Receive Date: 20050331
  Receipt Date: 20041216
  Transmission Date: 20051028
  Serious: No
  Sender: FDA-Public Use
  Company Number: 04P-163-0283644-00

PATIENT
  Age: 64 Year
  Sex: Female
  Weight: 62.1428 kg

DRUGS (9)
  1. HUMIRA [Suspect]
     Indication: RHEUMATOID ARTHRITIS
     Dosage: 40 MG, 1 IN 2 WK, SUBCUTANEOUS;  40 MG, 1 IN 2 WK , SUBCUTANEOUS
     Route: 058
     Dates: start: 20030101, end: 20041201
  2. HUMIRA [Suspect]
     Indication: RHEUMATOID ARTHRITIS
     Dosage: 40 MG, 1 IN 2 WK, SUBCUTANEOUS;  40 MG, 1 IN 2 WK , SUBCUTANEOUS
     Route: 058
     Dates: start: 20041201
  3. DIGOXIN [Concomitant]
  4. LEVOTHYROXINE SODIUM [Concomitant]
  5. ESTROGENS CONJUGATED [Concomitant]
  6. LANSOPRAZOLE [Concomitant]
  7. METHYLPREDNISOLONE [Concomitant]
  8. FOLIC ACID [Concomitant]
  9. TRAZODONE HCL [Concomitant]

REACTIONS (1)
  - SINUSITIS [None]
